FAERS Safety Report 5245593-X (Version None)
Quarter: 2007Q1

REPORT INFORMATION
  Report Type: 
  Country: None (occurrence: None)
  Receive Date: 20070223
  Receipt Date: 20070214
  Transmission Date: 20070707
  Serious: Yes (Hospitalization)
  Sender: FDA-Public Use
  Company Number: FR-PFIZER INC-2007010753

PATIENT
  Age: 46 Year
  Sex: Male
  Weight: 44 kg

DRUGS (8)
  1. SOLU-MEDROL [Suspect]
     Dosage: DAILY DOSE:60MG-TEXT:20 MG/2 ML
     Route: 042
  2. METRONIDAZOLE [Suspect]
     Indication: LYMPHANGITIS
     Route: 042
  3. CLAFORAN [Suspect]
     Indication: LYMPHANGITIS
     Route: 042
  4. CYMEVAN [Suspect]
     Route: 042
     Dates: start: 20060330, end: 20060420
  5. MESALAZINE [Suspect]
     Route: 048
  6. ALL OTHER THERAPEUTIC PRODUCTS [Suspect]
     Dosage: TEXT:1 DF
     Route: 042
     Dates: start: 20060313, end: 20060420
  7. GLUCOSE [Concomitant]
  8. AMINO ACIDS [Concomitant]

REACTIONS (3)
  - HYPOKALAEMIA [None]
  - HYPONATRAEMIA [None]
  - HYPOPROTEINAEMIA [None]
